FAERS Safety Report 8571649-X (Version None)
Quarter: 2012Q3

REPORT INFORMATION
  Report Type: 
  Country: None (occurrence: None)
  Receive Date: 20120806
  Receipt Date: 20120725
  Transmission Date: 20120928
  Serious: Yes (Hospitalization)
  Sender: FDA-Public Use
  Company Number: US-BAYER-2012-059927

PATIENT
  Age: 33 Year
  Sex: Female
  Weight: 63.492 kg

DRUGS (14)
  1. FLUCONAZOLE [Concomitant]
     Dosage: 150 MG, UNK
     Route: 048
     Dates: start: 20100311
  2. ANALGESICS [Concomitant]
  3. YAZ [Suspect]
     Indication: CONTRACEPTION
     Dosage: UNK
     Dates: start: 20100101, end: 20100728
  4. CRESTOR [Concomitant]
     Indication: HYPERCHOLESTEROLAEMIA
     Dosage: 20 MG, UNK
     Route: 048
     Dates: start: 20100323
  5. NEXIUM [Concomitant]
     Indication: GASTROOESOPHAGEAL REFLUX DISEASE
     Dosage: 40 MG, UNK
     Route: 048
     Dates: start: 20100323
  6. LEXAPRO [Concomitant]
     Indication: DEPRESSION
     Dosage: 10 MG, A DAY
     Route: 048
     Dates: start: 20100401
  7. HYDROMET SYRUP [Concomitant]
     Dosage: UNK
     Route: 048
     Dates: start: 20100504
  8. HYDROCODONE BITARTRATE AND ACETAMINOPHEN [Concomitant]
     Dosage: 5/500
     Route: 048
     Dates: start: 20100527
  9. MORPHINE SULFATE [Concomitant]
     Indication: PAIN
  10. YAZ [Suspect]
     Indication: PREMENSTRUAL SYNDROME
  11. CEPHALEXIN [Concomitant]
     Dosage: 500 MG, UNK
     Route: 048
     Dates: start: 20100426
  12. METHOCARBAMOL [Concomitant]
     Dosage: 750 MG, UNK
     Route: 048
     Dates: start: 20100429
  13. PROTONIX [Concomitant]
     Dosage: 40 MG, A DAY
     Route: 048
     Dates: start: 20100728
  14. TORADOL [Concomitant]

REACTIONS (11)
  - PAIN [None]
  - DYSPNOEA [None]
  - CHOLECYSTITIS CHRONIC [None]
  - CHOLELITHIASIS [None]
  - CHEST PAIN [None]
  - EMOTIONAL DISTRESS [None]
  - INJURY [None]
  - GENERAL PHYSICAL HEALTH DETERIORATION [None]
  - PULMONARY EMBOLISM [None]
  - OVARIAN CYST [None]
  - ANXIETY [None]
